FAERS Safety Report 9214356 (Version 4)
Quarter: 2016Q3

REPORT INFORMATION
  Report Type: Spontaneous
  Country: US (occurrence: US)
  Receive Date: 20130405
  Receipt Date: 20160713
  Transmission Date: 20161109
  Serious: No
  Sender: FDA-Public Use
  Company Number: US-009507513-1304USA002494

PATIENT
  Sex: Male

DRUGS (1)
  1. PROPECIA [Suspect]
     Active Substance: FINASTERIDE
     Indication: ANDROGENETIC ALOPECIA
     Dosage: 1 MG, UNK
     Route: 048
     Dates: start: 20070314, end: 2009

REACTIONS (12)
  - Cognitive disorder [Not Recovered/Not Resolved]
  - Testicular pain [Not Recovered/Not Resolved]
  - Sexual dysfunction [Not Recovered/Not Resolved]
  - Painful ejaculation [Unknown]
  - Prostatitis [Not Recovered/Not Resolved]
  - Dysuria [Unknown]
  - Semen volume decreased [Unknown]
  - Performance fear [Unknown]
  - Circumcision [Unknown]
  - Organic erectile dysfunction [Recovering/Resolving]
  - Disturbance in sexual arousal [Unknown]
  - Libido decreased [Unknown]

NARRATIVE: CASE EVENT DATE: 200708
